FAERS Safety Report 12552363 (Version 2)
Quarter: 2016Q4

REPORT INFORMATION
  Report Type: Spontaneous
  Country: AU (occurrence: AU)
  Receive Date: 20160713
  Receipt Date: 20161227
  Transmission Date: 20170207
  Serious: Yes (Life-Threatening)
  Sender: FDA-Public Use
  Company Number: AU-SUN PHARMACEUTICAL INDUSTRIES LTD-2016RR-120098

PATIENT
  Age: 26 Year
  Sex: Male

DRUGS (8)
  1. SULPHAMETHOXAZOLE/TRIMETHOPRIM [Suspect]
     Active Substance: SULFAMETHOXAZOLE\TRIMETHOPRIM
     Indication: RESPIRATORY TRACT INFECTION
     Dosage: 320MG/1600 MG
     Route: 042
     Dates: start: 2013
  2. IMIPENEM AND CILASTATIN [Suspect]
     Active Substance: CILASTATIN SODIUM\IMIPENEM
     Indication: RESPIRATORY TRACT INFECTION
     Route: 042
     Dates: start: 2013
  3. CASPOFUNGIN [Suspect]
     Active Substance: CASPOFUNGIN
     Indication: RESPIRATORY TRACT INFECTION
     Route: 065
  4. PIPERACILLIN/TAZOBACTAM [Suspect]
     Active Substance: PIPERACILLIN SODIUM\TAZOBACTAM SODIUM
     Indication: RESPIRATORY TRACT INFECTION
     Dosage: 12 G, DAILY
     Route: 041
  5. CASPOFUNGIN [Suspect]
     Active Substance: CASPOFUNGIN
     Dosage: 50 MG, UNK
     Route: 065
  6. AZITHROMYCIN ANHYDROUS. [Suspect]
     Active Substance: AZITHROMYCIN ANHYDROUS
     Indication: RESPIRATORY TRACT INFECTION
     Route: 048
  7. VANCOMYCIN HYDROCHLORIDE. [Suspect]
     Active Substance: VANCOMYCIN HYDROCHLORIDE
     Indication: RESPIRATORY TRACT INFECTION
     Route: 065
  8. TOBRAMYCIN. [Suspect]
     Active Substance: TOBRAMYCIN
     Indication: RESPIRATORY TRACT INFECTION
     Dosage: 560 MG, QD
     Route: 042

REACTIONS (1)
  - Treatment failure [Unknown]
